FAERS Safety Report 16300032 (Version 2)
Quarter: 2020Q4

REPORT INFORMATION
  Report Type: Spontaneous
  Country: US (occurrence: US)
  Receive Date: 20190510
  Receipt Date: 20201223
  Transmission Date: 20210113
  Serious: Yes (Other)
  Sender: FDA-Public Use
  Company Number: US-ASTRAZENECA-2019SE64574

PATIENT
  Sex: Male
  Weight: 61.2 kg

DRUGS (55)
  1. FLUOXETINE [Concomitant]
     Active Substance: FLUOXETINE HYDROCHLORIDE
     Dates: start: 201106, end: 201302
  2. FISH OIL [Concomitant]
     Active Substance: FISH OIL
     Dates: start: 2013
  3. MAALOX ANTACID [Concomitant]
     Active Substance: ALUMINUM HYDROXIDE\DIMETHICONE\MAGNESIUM HYDROXIDE
     Dates: start: 1995
  4. DOXYCYCLINE. [Concomitant]
     Active Substance: DOXYCYCLINE
  5. HYDROCERIN [Concomitant]
  6. CETIRIZINE [Concomitant]
     Active Substance: CETIRIZINE HYDROCHLORIDE
  7. SODIUM CHLORIDE. [Concomitant]
     Active Substance: SODIUM CHLORIDE
  8. CEPHALEXIN. [Concomitant]
     Active Substance: CEPHALEXIN
     Indication: INFECTION
     Dates: start: 201209, end: 201509
  9. ZANTAC [Concomitant]
     Active Substance: RANITIDINE HYDROCHLORIDE
     Dates: start: 20060530, end: 20170115
  10. PEPTO-BISMOL [Concomitant]
     Active Substance: BISMUTH SUBSALICYLATE
     Dates: start: 1995
  11. MAALOX ANTACID [Concomitant]
     Active Substance: ALUMINUM HYDROXIDE\DIMETHICONE\MAGNESIUM HYDROXIDE
     Dates: start: 1997, end: 2015
  12. GUAIFENESIN. [Concomitant]
     Active Substance: GUAIFENESIN
  13. KAOPECTATE REGULAR STRENGTH CHERRY FLAVOR [Concomitant]
     Active Substance: BISMUTH SUBSALICYLATE
  14. PRILOSEC OTC [Suspect]
     Active Substance: OMEPRAZOLE MAGNESIUM
     Route: 048
     Dates: start: 201301, end: 201807
  15. BACLOFEN. [Concomitant]
     Active Substance: BACLOFEN
     Indication: MUSCLE SPASMS
     Dates: start: 201703, end: 201902
  16. CLARITIN [Concomitant]
     Active Substance: LORATADINE
     Indication: SINUS DISORDER
     Dates: start: 2017
  17. FLUNISOLIDE. [Concomitant]
     Active Substance: FLUNISOLIDE
     Indication: ASTHMA
     Dates: start: 2017
  18. CLOTRIMAZOLE. [Concomitant]
     Active Substance: CLOTRIMAZOLE
  19. METHOCARBAMOL. [Concomitant]
     Active Substance: METHOCARBAMOL
  20. PROVENTIL [Concomitant]
     Active Substance: ALBUTEROL
  21. BENZTROPINE. [Concomitant]
     Active Substance: BENZTROPINE
     Indication: TREMOR
     Dates: start: 201202, end: 201205
  22. VENTOLIN/PROAIR [Concomitant]
     Indication: BRONCHOSPASM
     Dates: start: 200904, end: 201503
  23. TYLENOL [Concomitant]
     Active Substance: ACETAMINOPHEN
     Indication: HEADACHE
     Dates: start: 2017
  24. ALKA-SELTZER [Concomitant]
     Active Substance: ANHYDROUS CITRIC ACID\ASPIRIN\SODIUM BICARBONATE
     Dates: start: 1997, end: 2002
  25. CHLORPHENIRAMINE. [Concomitant]
     Active Substance: CHLORPHENIRAMINE
  26. CIPROFLOXACIN. [Concomitant]
     Active Substance: CIPROFLOXACIN
  27. HYDROCORTISONE. [Concomitant]
     Active Substance: HYDROCORTISONE
  28. RISPERIDONE. [Concomitant]
     Active Substance: RISPERIDONE
  29. FLONASE [Concomitant]
     Active Substance: FLUTICASONE PROPIONATE
  30. PRILOSEC [Suspect]
     Active Substance: OMEPRAZOLE MAGNESIUM
     Indication: GASTROOESOPHAGEAL REFLUX DISEASE
     Route: 048
     Dates: start: 201301, end: 201807
  31. PRILOSEC [Suspect]
     Active Substance: OMEPRAZOLE MAGNESIUM
     Indication: GASTROOESOPHAGEAL REFLUX DISEASE
     Route: 048
     Dates: start: 20100916
  32. ACTIFED [Concomitant]
     Indication: SINUS DISORDER
     Dates: start: 1998
  33. TUMS [Concomitant]
     Active Substance: CALCIUM CARBONATE
     Dates: start: 1997, end: 2002
  34. DIPHENHYDRAMINE. [Concomitant]
     Active Substance: DIPHENHYDRAMINE
  35. CICLOPIROX. [Concomitant]
     Active Substance: CICLOPIROX
  36. CRUEX [Concomitant]
  37. PRILOSEC [Suspect]
     Active Substance: OMEPRAZOLE MAGNESIUM
     Indication: GASTROOESOPHAGEAL REFLUX DISEASE
     Dosage: 20.0MG UNKNOWN
     Route: 048
     Dates: start: 20100708
  38. VENTOLIN/PROAIR [Concomitant]
     Indication: ASTHMA
     Dates: start: 200904, end: 201503
  39. VENTOLIN/PROAIR [Concomitant]
     Indication: ASTHMA
     Dates: start: 2010
  40. MULTIVITAMINS [Concomitant]
     Active Substance: VITAMINS
     Indication: HYPOVITAMINOSIS
     Dates: start: 2013
  41. CIMETIDINE [Concomitant]
     Active Substance: CIMETIDINE
     Dates: start: 1997
  42. RANITIDINE. [Concomitant]
     Active Substance: RANITIDINE
     Dosage: GENERIC
     Dates: start: 20090114, end: 20180724
  43. MILK OF MAGNESIA [Concomitant]
     Active Substance: MAGNESIUM HYDROXIDE
     Dates: start: 1994
  44. PEPTO-BISMOL [Concomitant]
     Active Substance: BISMUTH SUBSALICYLATE
     Dates: start: 1997, end: 2015
  45. TAMSULOSIN [Concomitant]
     Active Substance: TAMSULOSIN
  46. VITAMIN A [Concomitant]
     Active Substance: VITAMIN A
  47. VITAMIN D [Concomitant]
     Active Substance: VITAMIN D NOS
  48. LAMISIL [Concomitant]
     Active Substance: TERBINAFINE HYDROCHLORIDE
  49. LORATADINE. [Concomitant]
     Active Substance: LORATADINE
  50. PRILOSEC [Suspect]
     Active Substance: OMEPRAZOLE MAGNESIUM
     Indication: GASTROOESOPHAGEAL REFLUX DISEASE
     Dosage: GENERIC
     Route: 065
     Dates: start: 20100707
  51. VENTOLIN/PROAIR [Concomitant]
     Indication: BRONCHOSPASM
     Dates: start: 2010
  52. ALVESCO [Concomitant]
     Active Substance: CICLESONIDE
     Indication: ASTHMA
     Dates: start: 2018
  53. TUMS [Concomitant]
     Active Substance: CALCIUM CARBONATE
     Dates: start: 1994, end: 1996
  54. ALKA-SELTZER [Concomitant]
     Active Substance: ANHYDROUS CITRIC ACID\ASPIRIN\SODIUM BICARBONATE
     Dates: start: 1994, end: 1996
  55. QVAR [Concomitant]
     Active Substance: BECLOMETHASONE DIPROPIONATE

REACTIONS (3)
  - Acute kidney injury [Recovered/Resolved]
  - Gastrooesophageal reflux disease [Not Recovered/Not Resolved]
  - Tubulointerstitial nephritis [Unknown]
